FAERS Safety Report 5630773-1 (Version None)
Quarter: 2008Q1

REPORT INFORMATION
  Report Type: 
  Country: None (occurrence: None)
  Receive Date: 20080212
  Receipt Date: 20080131
  Transmission Date: 20080703
  Serious: Yes (Hospitalization)
  Sender: FDA-Public Use
  Company Number: 2008AL000571

PATIENT
  Age: 29 Month
  Sex: Male
  Weight: 13.7 kg

DRUGS (8)
  1. ACETAMINOPHEN AND CODEINE PHOSPHATE [Suspect]
     Indication: ANALGESIA
     Dosage: PO
     Route: 048
  2. NITROUS OXIDE [Concomitant]
  3. OXYGEN [Concomitant]
  4. SEVOFLURANE [Concomitant]
  5. FENTANYL [Concomitant]
  6. ODANSETRON [Concomitant]
  7. HYDROCORTISONE [Concomitant]
  8. MORPHINE [Concomitant]

REACTIONS (9)
  - APNOEA [None]
  - CEREBRAL INFARCTION [None]
  - DRUG TOXICITY [None]
  - ENZYME ABNORMALITY [None]
  - MIOSIS [None]
  - NERVOUS SYSTEM DISORDER [None]
  - RESPIRATORY RATE INCREASED [None]
  - SLEEP TERROR [None]
  - UNRESPONSIVE TO STIMULI [None]
